FAERS Safety Report 8605680-2 (Version None)
Quarter: 2012Q3

REPORT INFORMATION
  Report Type: 
  Country: None (occurrence: None)
  Receive Date: 20120820
  Receipt Date: 20120816
  Transmission Date: 20120928
  Serious: Yes (Hospitalization)
  Sender: FDA-Public Use
  Company Number: US-FRI-1000037874

PATIENT
  Sex: Female

DRUGS (1)
  1. DALIRESP [Suspect]
     Route: 048

REACTIONS (2)
  - DIARRHOEA [None]
  - DEHYDRATION [None]
